FAERS Safety Report 5893414-4 (Version None)
Quarter: 2008Q3

REPORT INFORMATION
  Report Type: 
  Country: None (occurrence: None)
  Receive Date: 20080922
  Receipt Date: 20080922
  Transmission Date: 20090109
  Serious: Yes (Other)
  Sender: FDA-Public Use
  Company Number: None

PATIENT
  Sex: Female
  Weight: 70.3075 kg

DRUGS (2)
  1. GABAPENTIN [Suspect]
     Indication: NEURALGIA
     Dosage: 600MG  PRN PO
     Route: 048
     Dates: start: 20080101, end: 20080920
  2. ESTROGENIC SUBSTANCE [Concomitant]

REACTIONS (1)
  - AMNESIA [None]
